FAERS Safety Report 9769519 (Version 3)
Quarter: 2013Q4

REPORT INFORMATION
  Report Type: Report from Study
  Country: CA (occurrence: CA)
  Receive Date: 20131218
  Receipt Date: 20131226
  Transmission Date: 20140711
  Serious: No
  Sender: FDA-Public Use
  Company Number: CA-JNJFOC-20131109622

PATIENT
  Sex: Female
  Weight: 60.4 kg

DRUGS (1)
  1. REMICADE [Suspect]
     Indication: CROHN^S DISEASE
     Route: 042
     Dates: start: 20111001

REACTIONS (1)
  - Exposure during pregnancy [Recovered/Resolved]
